FAERS Safety Report 19010803 (Version 2)
Quarter: 2021Q2

REPORT INFORMATION
  Report Type: Report from Study
  Country: FR (occurrence: FR)
  Receive Date: 20210316
  Receipt Date: 20210407
  Transmission Date: 20210717
  Serious: Yes (Hospitalization)
  Sender: FDA-Public Use
  Company Number: FR-BRISTOL-MYERS SQUIBB COMPANY-BMS-2021-023013

PATIENT
  Age: 52 Year
  Sex: Female
  Weight: 88 kg

DRUGS (7)
  1. ENCORAFENIB [Suspect]
     Active Substance: ENCORAFENIB
     Indication: MALIGNANT MELANOMA
     Dosage: 450 MILLIGRAM, QD
     Route: 048
     Dates: start: 20191226, end: 20200315
  2. BINIMETINIB [Suspect]
     Active Substance: BINIMETINIB
     Indication: MALIGNANT MELANOMA
     Dosage: 45 MILLIGRAM, BID
     Route: 048
     Dates: start: 20191226, end: 20200315
  3. NIVOLUMAB [Suspect]
     Active Substance: NIVOLUMAB
     Indication: MALIGNANT MELANOMA
     Dosage: 258 MILLIGRAM (3 MG/KG EVERY 3 WEEKS?FIRST 4 INJECTIONS)
     Route: 042
     Dates: start: 20200324, end: 20200505
  4. PRAVASTATIN SODIUM. [Suspect]
     Active Substance: PRAVASTATIN SODIUM
     Indication: BLOOD CHOLESTEROL INCREASED
     Dosage: 20 MILLIGRAM, QD
     Route: 048
     Dates: end: 20201002
  5. IPILIMUMAB [Suspect]
     Active Substance: IPILIMUMAB
     Indication: MALIGNANT MELANOMA
     Dosage: 86 MILLIGRAM, Q3WK
     Route: 042
     Dates: start: 20200324, end: 20200505
  6. DABRAFENIB [Suspect]
     Active Substance: DABRAFENIB
     Indication: MALIGNANT MELANOMA
     Dosage: 150 MILLIGRAM, BID
     Route: 048
     Dates: start: 20200622, end: 20201002
  7. TRAMETINIB [Suspect]
     Active Substance: TRAMETINIB
     Indication: MALIGNANT MELANOMA
     Dosage: 2 MILLIGRAM, QD
     Route: 048
     Dates: start: 20200622, end: 20201002

REACTIONS (1)
  - Inflammation [Recovered/Resolved]

NARRATIVE: CASE EVENT DATE: 20200929
